FAERS Safety Report 12421380 (Version 2)
Quarter: 2016Q3

REPORT INFORMATION
  Report Type: Report from Study
  Country: DE (occurrence: DE)
  Receive Date: 20160531
  Receipt Date: 20160824
  Transmission Date: 20161109
  Serious: Yes (Hospitalization, Other)
  Sender: FDA-Public Use
  Company Number: DE-UCBSA-2016019766

PATIENT
  Age: 60 Year
  Sex: Female
  Weight: 78 kg

DRUGS (7)
  1. PANTOPRAZOL [Concomitant]
     Active Substance: PANTOPRAZOLE SODIUM
     Indication: PROPHYLAXIS
     Dosage: 40 MG, WEEKLY (QW)
     Dates: start: 201405
  2. CERTOLIZUMAB PEGOL [Suspect]
     Active Substance: CERTOLIZUMAB PEGOL
     Indication: RHEUMATOID ARTHRITIS
     Dosage: 400 MG X 3
     Route: 058
     Dates: start: 20160128, end: 20160225
  3. MTX [Concomitant]
     Active Substance: METHOTREXATE SODIUM
     Indication: RHEUMATOID ARTHRITIS
     Dosage: 20 G, WEEKLY (QW)
     Dates: start: 201405
  4. CERTOLIZUMAB PEGOL [Suspect]
     Active Substance: CERTOLIZUMAB PEGOL
     Dosage: 1 X 200 MG
     Route: 058
     Dates: start: 20160310, end: 20160407
  5. FOLIC ACID. [Concomitant]
     Active Substance: FOLIC ACID
     Indication: RHEUMATOID ARTHRITIS
     Dosage: 5 MG, WEEKLY (QW)
     Dates: start: 201405
  6. MAGNESIUM [Concomitant]
     Active Substance: MAGNESIUM
     Indication: PROPHYLAXIS
     Dosage: 800 MG, WEEKLY (QW)
     Dates: start: 201405
  7. CERTOLIZUMAB PEGOL [Suspect]
     Active Substance: CERTOLIZUMAB PEGOL
     Dosage: 400 MG, STRENGTH: 200 MG 2 X 2 SYRINGE
     Route: 058
     Dates: start: 20160421, end: 20160504

REACTIONS (5)
  - Laryngitis [Not Recovered/Not Resolved]
  - Oropharyngeal pain [Not Recovered/Not Resolved]
  - Swollen tongue [Not Recovered/Not Resolved]
  - Dyspnoea [Not Recovered/Not Resolved]
  - Lymphoid tissue hyperplasia [Recovering/Resolving]

NARRATIVE: CASE EVENT DATE: 20160425
